FAERS Safety Report 19743098 (Version 1)
Quarter: 2021Q3

REPORT INFORMATION
  Report Type: Other
  Country: FR (occurrence: FR)
  Receive Date: 20210825
  Receipt Date: 20210825
  Transmission Date: 20211014
  Serious: Yes (Hospitalization)
  Sender: FDA-Public Use
  Company Number: FR-CADILA HEALTHCARE LIMITED-FR-ZYDUS-069109

PATIENT

DRUGS (9)
  1. PACLITAXEL. [Suspect]
     Active Substance: PACLITAXEL
     Dosage: UNK
     Route: 041
     Dates: start: 20210611, end: 20210611
  2. VENLAFAXINE [Suspect]
     Active Substance: VENLAFAXINE HYDROCHLORIDE
     Indication: DEPRESSION
     Dosage: 75 MILLIGRAM, QD
     Route: 048
  3. PACLITAXEL. [Suspect]
     Active Substance: PACLITAXEL
     Indication: OVARIAN EPITHELIAL CANCER
     Dosage: UNK
     Route: 041
     Dates: start: 20210519, end: 20210519
  4. AMLODIPINE [Concomitant]
     Active Substance: AMLODIPINE BESYLATE
     Indication: HYPERTENSION
     Dosage: 5 MILLIGRAM, QD
     Route: 048
  5. HYDROCHLOROTHIAZIDE. [Concomitant]
     Active Substance: HYDROCHLOROTHIAZIDE
     Indication: HYPERTENSION
     Dosage: 25 MILLIGRAM, QD
     Route: 048
  6. CARBOPLATINE [Suspect]
     Active Substance: CARBOPLATIN
     Dosage: UNK
     Route: 041
     Dates: start: 20210611, end: 20210611
  7. CARBOPLATINE [Suspect]
     Active Substance: CARBOPLATIN
     Indication: OVARIAN EPITHELIAL CANCER
     Dosage: UNK
     Route: 041
     Dates: start: 20210519, end: 20210519
  8. LEVOTHYROX [Concomitant]
     Active Substance: LEVOTHYROXINE
     Indication: HYPOTHYROIDISM
     Dosage: 125 MICROGRAM, QD
     Route: 048
  9. CANDESARTAN CILEXETIL. [Concomitant]
     Active Substance: CANDESARTAN CILEXETIL
     Indication: HYPERTENSION
     Dosage: 16 MILLIGRAM, QD
     Route: 048

REACTIONS (1)
  - Posterior reversible encephalopathy syndrome [Recovered/Resolved with Sequelae]

NARRATIVE: CASE EVENT DATE: 20210614
